FAERS Safety Report 4982643-X (Version None)
Quarter: 2006Q2

REPORT INFORMATION
  Report Type: 
  Country: None (occurrence: None)
  Receive Date: 20060419
  Receipt Date: 20060410
  Transmission Date: 20061013
  Serious: Yes (Hospitalization, Other)
  Sender: FDA-Public Use
  Company Number: 2006045965

PATIENT
  Age: 63 Year
  Sex: Female
  Weight: 70.3075 kg

DRUGS (16)
  1. TIKOSYN [Suspect]
     Indication: ATRIAL FIBRILLATION
     Dosage: 0.5 MG (0.25 MG, 2 IN 1 D), UNKNOWN
     Route: 065
     Dates: start: 20060202
  2. SOTALOL HCL [Suspect]
     Indication: ATRIAL FIBRILLATION
     Dosage: UNKNOWN
     Route: 065
  3. DIGOXIN [Concomitant]
  4. ELAVIL [Concomitant]
  5. PROTONIX [Concomitant]
  6. REGLAN [Concomitant]
  7. CYMBALTA [Concomitant]
  8. AVAPRO [Concomitant]
  9. HYDROCORTISONE [Concomitant]
  10. THYROID TAB [Concomitant]
  11. INSULIN [Concomitant]
  12. ZETIA [Concomitant]
  13. COUMADIN [Concomitant]
  14. LASIX [Concomitant]
  15. ALDACTONE [Concomitant]
  16. AMIODARONE HYDROCHLORIDE [Concomitant]

REACTIONS (6)
  - BLOOD GLUCOSE INCREASED [None]
  - CELLULITIS [None]
  - HYPOAESTHESIA [None]
  - INAPPROPRIATE SCHEDULE OF DRUG ADMINISTRATION [None]
  - INSOMNIA [None]
  - VISION BLURRED [None]
